FAERS Safety Report 10421271 (Version 2)
Quarter: 2014Q4

REPORT INFORMATION
  Report Type: Report from Study
  Country: RU (occurrence: RU)
  Receive Date: 20140830
  Receipt Date: 20141001
  Transmission Date: 20150528
  Serious: Yes (Hospitalization, Disabling, Other)
  Sender: FDA-Public Use
  Company Number: PHHY2014RU107817

PATIENT
  Age: 59 Year
  Sex: Female

DRUGS (3)
  1. ACLASTA [Suspect]
     Active Substance: ZOLEDRONIC ACID
     Dosage: UNK
     Route: 042
     Dates: start: 20140530
  2. ACLASTA [Suspect]
     Active Substance: ZOLEDRONIC ACID
     Indication: OSTEOPOROSIS
     Dosage: UNK
     Route: 042
     Dates: start: 2013
  3. PIRACETAMUM [Concomitant]
     Indication: PRODUCT USED FOR UNKNOWN INDICATION
     Dosage: UNK UKN, UNK
     Route: 065

REACTIONS (7)
  - Craniocerebral injury [Recovering/Resolving]
  - Wrist fracture [Recovering/Resolving]
  - Road traffic accident [Unknown]
  - Clavicle fracture [Recovering/Resolving]
  - Joint injury [Recovering/Resolving]
  - Joint dislocation [Recovering/Resolving]
  - Scapula fracture [Recovering/Resolving]

NARRATIVE: CASE EVENT DATE: 20140816
